FAERS Safety Report 22055355 (Version 2)
Quarter: 2023Q1

REPORT INFORMATION
  Report Type: Spontaneous
  Country: US (occurrence: US)
  Receive Date: 20230302
  Receipt Date: 20230317
  Transmission Date: 20230418
  Serious: Yes (Other)
  Sender: FDA-Public Use
  Company Number: US-AMGEN-USASP2023033636

PATIENT
  Sex: Female

DRUGS (1)
  1. PROLIA [Suspect]
     Active Substance: DENOSUMAB
     Indication: Osteoporosis postmenopausal
     Dosage: UNK
     Route: 065

REACTIONS (7)
  - Osteonecrosis of jaw [Unknown]
  - Sneezing [Unknown]
  - Glomerular filtration rate abnormal [Unknown]
  - Hiccups [Unknown]
  - Blood pressure abnormal [Unknown]
  - Back pain [Unknown]
  - Pain in extremity [Unknown]
